FAERS Safety Report 8436924-8 (Version None)
Quarter: 2012Q2

REPORT INFORMATION
  Report Type: 
  Country: None (occurrence: None)
  Receive Date: 20120614
  Receipt Date: 20111209
  Transmission Date: 20120825
  Serious: No
  Sender: FDA-Public Use
  Company Number: US-AMGEN-USASP2011065825

PATIENT
  Age: 63 Year
  Sex: Female

DRUGS (2)
  1. ARANESP [Suspect]
  2. XGEVA [Suspect]
     Indication: BREAST CANCER METASTATIC
     Dosage: 120 MG, Q6MO

REACTIONS (1)
  - BONE PAIN [None]
